FAERS Safety Report 13707004 (Version 1)
Quarter: 2017Q2

REPORT INFORMATION
  Report Type: Spontaneous
  Country: US (occurrence: US)
  Receive Date: 20170630
  Receipt Date: 20170630
  Transmission Date: 20170830
  Serious: No
  Sender: FDA-Public Use
  Company Number: US-GLAXOSMITHKLINE-US2017096029

PATIENT
  Age: 71 Year
  Sex: Male

DRUGS (2)
  1. ABREVA [Suspect]
     Active Substance: DOCOSANOL
     Indication: ORAL HERPES
     Dosage: UNK, USED ATLEAST 10 DAYS
  2. ABREVA [Suspect]
     Active Substance: DOCOSANOL
     Dosage: UNK, GAVE IT 4-5 DAYS AND STILL USING

REACTIONS (3)
  - Incorrect drug administration duration [Unknown]
  - Product quality issue [Unknown]
  - Drug ineffective [Unknown]
